FAERS Safety Report 4429574-1 (Version None)
Quarter: 2004Q3

REPORT INFORMATION
  Report Type: 
  Country: None (occurrence: None)
  Receive Date: 20040816
  Receipt Date: 20030220
  Transmission Date: 20050211
  Serious: Yes (Other)
  Sender: FDA-Public Use
  Company Number: EMADSS2002001662

PATIENT
  Age: 60 Year
  Sex: Female
  Weight: 78.5 kg

DRUGS (3)
  1. PLACEBO (PLACEBO) TABLETS [Suspect]
     Indication: OBESITY
     Dosage: ORAL
     Route: 048
     Dates: start: 20010724
  2. DICLOFENAC SODIUM [Suspect]
     Indication: PAIN
     Dosage: 100 MG, ORAL
     Route: 048
  3. ACEBUTOLOL (ACEBUTOLOL) UNSPECIFIED [Concomitant]

REACTIONS (2)
  - DRUG HYPERSENSITIVITY [None]
  - DRUG INTERACTION [None]
